FAERS Safety Report 5962985-1 (Version None)
Quarter: 2008Q4

REPORT INFORMATION
  Report Type: 
  Country: None (occurrence: None)
  Receive Date: 20081124
  Receipt Date: 20081118
  Transmission Date: 20090506
  Serious: Yes (Death)
  Sender: FDA-Public Use
  Company Number: JP-BRISTOL-MYERS SQUIBB COMPANY-14413702

PATIENT
  Age: 71 Year
  Sex: Male

DRUGS (2)
  1. ERBITUX [Suspect]
     Indication: RECTAL CANCER
     Route: 041
     Dates: start: 20081105, end: 20081105
  2. TOPOTECIN [Suspect]
     Route: 041
     Dates: start: 20081105, end: 20081105

REACTIONS (1)
  - CARDIAC FAILURE [None]
